FAERS Safety Report 17062856 (Version 1)
Quarter: 2019Q4

REPORT INFORMATION
  Report Type: Spontaneous
  Country: CN (occurrence: CN)
  Receive Date: 20191122
  Receipt Date: 20191122
  Transmission Date: 20200122
  Serious: Yes (Other)
  Sender: FDA-Public Use
  Company Number: CN-US-PROVELL PHARMACEUTICALS LLC-9129669

PATIENT
  Age: 79 Year
  Sex: Female
  Weight: 55 kg

DRUGS (5)
  1. ISOSORBIDE MONONITRATE. [Suspect]
     Active Substance: ISOSORBIDE MONONITRATE
     Indication: CORONARY ARTERY DISEASE
     Dosage: SUSTAINED RELEASE CAPSULE
     Dates: start: 20191106, end: 20191112
  2. ATORVASTATIN CALCIUM. [Suspect]
     Active Substance: ATORVASTATIN CALCIUM
     Indication: ARTERIOSCLEROSIS CORONARY ARTERY
     Dosage: 4 PLUS 7 TABLETS
     Route: 048
     Dates: start: 20191106, end: 20191112
  3. ESTAZOLAM. [Suspect]
     Active Substance: ESTAZOLAM
     Indication: INSOMNIA
     Dates: start: 20191107, end: 20191112
  4. EUTHYROX [Suspect]
     Active Substance: LEVOTHYROXINE SODIUM
     Indication: HYPOTHYROIDISM
     Route: 048
     Dates: start: 20191109
  5. METHOXYAMINE [Suspect]
     Active Substance: METHOXYAMINE
     Indication: COUGH
     Dosage: COMPOUND METHOXYLAMINE CAPSULE
     Route: 048
     Dates: start: 20191107, end: 20191112

REACTIONS (3)
  - Leukopenia [Unknown]
  - Haemoglobin decreased [Unknown]
  - Neutropenia [Unknown]

NARRATIVE: CASE EVENT DATE: 20191111
